FAERS Safety Report 18424573 (Version 1)
Quarter: 2020Q4

REPORT INFORMATION
  Report Type: Spontaneous
  Country: NL (occurrence: NL)
  Receive Date: 20201026
  Receipt Date: 20201026
  Transmission Date: 20210114
  Serious: Yes (Other)
  Sender: FDA-Public Use
  Company Number: NL-AUROBINDO-AUR-APL-2020-052171

PATIENT
  Age: 48 Year
  Sex: Male

DRUGS (4)
  1. LAMIVUDINE AND ZIDOVUDINE [Suspect]
     Active Substance: LAMIVUDINE\ZIDOVUDINE
     Indication: POST HERPETIC NEURALGIA
     Dosage: UNK
     Route: 065
  2. CARBAMAZAPINE [Suspect]
     Active Substance: CARBAMAZEPINE
     Indication: POST HERPETIC NEURALGIA
     Dosage: 200 MILLIGRAM, ONCE A DAY
     Route: 065
  3. TRAMADOL. [Suspect]
     Active Substance: TRAMADOL
     Indication: POST HERPETIC NEURALGIA
     Dosage: UNK
     Route: 065
  4. INDINAVIR [Suspect]
     Active Substance: INDINAVIR
     Indication: HIV INFECTION
     Dosage: 800 MILLIGRAM, 3 TIMES A DAY
     Route: 065

REACTIONS (5)
  - Herpes zoster [Unknown]
  - Drug ineffective [Unknown]
  - Blood HIV RNA increased [Recovered/Resolved]
  - Somnolence [Unknown]
  - Drug interaction [Recovered/Resolved]
